FAERS Safety Report 20746960 (Version 1)
Quarter: 2022Q2

REPORT INFORMATION
  Report Type: Spontaneous
  Country: US (occurrence: US)
  Receive Date: 20220425
  Receipt Date: 20220425
  Transmission Date: 20220721
  Serious: Yes (Other)
  Sender: FDA-Public Use
  Company Number: US-PFIZER INC-202200611266

PATIENT
  Sex: Female

DRUGS (2)
  1. NICOTROL [Suspect]
     Active Substance: NICOTINE
     Dosage: ONE SPRAY IN EACH NOSTRIL
     Route: 045
  2. NICOTROL [Suspect]
     Active Substance: NICOTINE
     Dosage: UNK, 4X/DAY
     Route: 045

REACTIONS (2)
  - Dyspnoea [Unknown]
  - Chronic sinusitis [Unknown]
